FAERS Safety Report 6967842-X (Version None)
Quarter: 2010Q3

REPORT INFORMATION
  Report Type: 
  Country: None (occurrence: None)
  Receive Date: 20100907
  Receipt Date: 20100211
  Transmission Date: 20110219
  Serious: No
  Sender: FDA-Public Use
  Company Number: A0844022A

PATIENT
  Sex: Male

DRUGS (13)
  1. ROPINIROLE [Suspect]
     Indication: PERIODIC LIMB MOVEMENT DISORDER
     Dosage: 2MG PER DAY
     Route: 048
  2. LEXAPRO [Concomitant]
  3. RITALIN [Concomitant]
  4. ZYRTEC [Concomitant]
  5. NASACORT AQ [Concomitant]
  6. PREVACID [Concomitant]
  7. LEVOTHYROXINE [Concomitant]
  8. NO DOZ [Concomitant]
  9. ALEVE (CAPLET) [Concomitant]
  10. TRAMADOL HCL [Concomitant]
  11. CLONAZEPAM [Concomitant]
  12. SEROQUEL [Concomitant]
  13. TRAZODONE HCL [Concomitant]

REACTIONS (1)
  - DRUG INEFFECTIVE [None]
